FAERS Safety Report 4704579-1 (Version None)
Quarter: 2005Q2

REPORT INFORMATION
  Report Type: 
  Country: None (occurrence: None)
  Receive Date: 20050630
  Receipt Date: 20050616
  Transmission Date: 20051028
  Serious: Yes (Hospitalization, Other)
  Sender: FDA-Public Use
  Company Number: A-US2005-09800

PATIENT
  Age: 37 Year
  Sex: Female

DRUGS (3)
  1. TRACLEER [Suspect]
     Indication: EXTREMITY NECROSIS
     Dosage: SEE IMAGE
     Route: 048
     Dates: start: 20050101, end: 20050101
  2. TRACLEER [Suspect]
     Indication: EXTREMITY NECROSIS
     Dosage: SEE IMAGE
     Route: 048
     Dates: start: 20050101, end: 20050401
  3. ORAL CONTRACEPITVE NOS (ORAL  CONTRACEPTIVE NOS) [Suspect]
     Dates: start: 20050101

REACTIONS (3)
  - DEEP VEIN THROMBOSIS [None]
  - DRUG INEFFECTIVE [None]
  - PULMONARY EMBOLISM [None]
